FAERS Safety Report 9184487 (Version 1)
Quarter: 2013Q1

REPORT INFORMATION
  Report Type: Spontaneous
  Country: GR (occurrence: GR)
  Receive Date: 20130322
  Receipt Date: 20130322
  Transmission Date: 20140127
  Serious: Yes (Hospitalization)
  Sender: FDA-Public Use
  Company Number: GR-ELI_LILLY_AND_COMPANY-GR201302008077

PATIENT
  Age: 33 Year
  Sex: Male

DRUGS (5)
  1. ZYPADHERA [Suspect]
     Indication: SCHIZOAFFECTIVE DISORDER
     Dosage: 300 MG, EVERY 15 DAYS
     Route: 030
     Dates: end: 20130212
  2. LYRICA [Concomitant]
     Indication: SCHIZOAFFECTIVE DISORDER
     Dosage: 150 MG, BID
     Route: 048
  3. STEDON [Concomitant]
     Indication: SCHIZOAFFECTIVE DISORDER
     Dosage: 10 MG, BID
     Route: 048
  4. ALCOHOL [Interacting]
     Dosage: UNK, UNKNOWN
     Dates: start: 20130212, end: 20130212
  5. ALOPERIDIN [Concomitant]
     Dosage: 20 DROPS, EACH NIGHT DAILY

REACTIONS (4)
  - Aggression [Recovered/Resolved]
  - Disorientation [Recovered/Resolved]
  - Somnolence [Recovered/Resolved]
  - Off label use [Unknown]
